FAERS Safety Report 14780181 (Version 1)
Quarter: 2018Q2

REPORT INFORMATION
  Report Type: Spontaneous
  Country: DE (occurrence: DE)
  Receive Date: 20180419
  Receipt Date: 20180419
  Transmission Date: 20180711
  Serious: Yes (Hospitalization)
  Sender: FDA-Public Use
  Company Number: DE-FERRINGPH-2018FE01913

PATIENT

DRUGS (10)
  1. SODIUM CHLORIDE. [Suspect]
     Active Substance: SODIUM CHLORIDE
     Dosage: 1000 MG, 1-1-1-0 ()
     Route: 048
  2. LEVETIRACETAM. [Suspect]
     Active Substance: LEVETIRACETAM
     Dosage: 1000 MG, 1-1-1-0
     Route: 048
  3. HYDROCORTISON                      /00028601/ [Suspect]
     Active Substance: HYDROCORTISONE
     Dosage: 10 MG, 1-1-0-0
     Route: 048
  4. DESMOPRESSIN [Suspect]
     Active Substance: DESMOPRESSIN
     Indication: PRODUCT USE IN UNAPPROVED INDICATION
     Dosage: 0.1 MG, 0-0-1-0
     Route: 048
  5. VITAMIN B [Suspect]
     Active Substance: VITAMIN B
     Dosage: 1-0-0-0
     Route: 048
  6. LEVOTHYROXIN [Suspect]
     Active Substance: LEVOTHYROXINE
     Dosage: 75 MG, 1-0-0-0
     Route: 048
  7. ALLOPURINOL. [Suspect]
     Active Substance: ALLOPURINOL
     Dosage: 100 MG, 0-0-1-0
     Route: 048
  8. AMLODIPIN                          /00972401/ [Suspect]
     Active Substance: AMLODIPINE BESYLATE
     Dosage: 0.5 DF, DAILY
     Route: 048
  9. PANTOPRAZOL                        /01263201/ [Suspect]
     Active Substance: PANTOPRAZOLE
     Dosage: 20 MG, 1-0-0-0
     Route: 048
  10. TESTOSTERON /00103102/ [Suspect]
     Active Substance: TESTOSTERONE PROPIONATE
     Dosage: 250 MG, ACCORDING TO SCHEDULE
     Route: 030

REACTIONS (2)
  - Oedema peripheral [Unknown]
  - Ascites [Unknown]
